FAERS Safety Report 21990025 (Version 9)
Quarter: 2023Q2

REPORT INFORMATION
  Report Type: Spontaneous
  Country: US (occurrence: US)
  Receive Date: 20230214
  Receipt Date: 20230512
  Transmission Date: 20230722
  Serious: No
  Sender: FDA-Public Use
  Company Number: US-PFIZER INC-PV202300026345

PATIENT
  Age: 75 Year
  Sex: Female
  Weight: 74.842 kg

DRUGS (5)
  1. PREMARIN [Suspect]
     Active Substance: ESTROGENS, CONJUGATED
     Indication: Hormone replacement therapy
     Dosage: 0.625 MG, 1X/DAY
     Route: 048
     Dates: start: 1997
  2. PREMARIN [Suspect]
     Active Substance: ESTROGENS, CONJUGATED
     Dosage: 0.625 MG, DAILY
     Route: 048
     Dates: start: 202204
  3. PROMETRIUM [Concomitant]
     Active Substance: PROGESTERONE
     Indication: Hormone replacement therapy
     Dosage: 200 MG
     Route: 048
     Dates: start: 2006
  4. PROMETRIUM [Concomitant]
     Active Substance: PROGESTERONE
     Dosage: UNK (ONLY 2 MEDS)
     Route: 048
     Dates: start: 2007
  5. PREMPRO [Concomitant]
     Active Substance: ESTROGENS, CONJUGATED\MEDROXYPROGESTERONE ACETATE
     Indication: Hormone replacement therapy
     Dosage: UNK
     Dates: end: 2006

REACTIONS (9)
  - Suspected counterfeit product [Unknown]
  - Drug ineffective [Unknown]
  - Night sweats [Recovering/Resolving]
  - Hot flush [Recovering/Resolving]
  - Loss of libido [Unknown]
  - Alopecia [Recovering/Resolving]
  - Skin disorder [Unknown]
  - Fatigue [Recovering/Resolving]
  - Insomnia [Recovering/Resolving]

NARRATIVE: CASE EVENT DATE: 20220101
